FAERS Safety Report 8760657 (Version 3)
Quarter: 2012Q4

REPORT INFORMATION
  Report Type: 
  Country: US (occurrence: US)
  Receive Date: 20120830
  Receipt Date: 20121029
  Transmission Date: 20130627
  Serious: Yes (Hospitalization)
  Sender: FDA-Public Use
  Company Number: US-SHIRE-ALL1-2012-04076

PATIENT
  Age: 11 Year
  Sex: Female
  Weight: 28.12 kg

DRUGS (6)
  1. INTUNIV [Suspect]
     Indication: ATTENTION DEFICIT/HYPERACTIVITY DISORDER
     Dosage: 2 mg, 1x/day:qd
     Route: 048
     Dates: start: 20120712, end: 20120810
  2. INTUNIV [Suspect]
     Dosage: 1 mg, Unknown
     Route: 048
  3. CONCERTA [Concomitant]
     Indication: ATTENTION DEFICIT/HYPERACTIVITY DISORDER
     Dosage: 54 mg, 1x/day:qd
     Route: 048
  4. MELATONIN [Concomitant]
     Indication: INSOMNIA
     Dosage: 5 mg, 1x/day:qd (at night)
     Route: 048
  5. MELATONIN [Concomitant]
     Dosage: 8 mg, 1x/day:qd (qhs)
     Route: 048
  6. ZYRTEC [Concomitant]
     Indication: SEASONAL ALLERGY
     Dosage: 10 mg, 1x/day:qd
     Route: 048

REACTIONS (5)
  - Blindness transient [Recovered/Resolved]
  - Toxicity to various agents [Recovered/Resolved]
  - Sinus bradycardia [Recovered/Resolved]
  - Dizziness [Recovered/Resolved]
  - Syncope [Recovered/Resolved]
